APPROVED DRUG PRODUCT: ACTIQ
Active Ingredient: FENTANYL CITRATE
Strength: EQ 1.2MG BASE
Dosage Form/Route: TROCHE/LOZENGE;TRANSMUCOSAL
Application: N020747 | Product #005
Applicant: CEPHALON LLC
Approved: Nov 4, 1998 | RLD: Yes | RS: No | Type: DISCN